FAERS Safety Report 17350842 (Version 1)
Quarter: 2020Q1

REPORT INFORMATION
  Report Type: Spontaneous
  Country: US (occurrence: US)
  Receive Date: 20200130
  Receipt Date: 20200130
  Transmission Date: 20200409
  Serious: Yes (Hospitalization, Other)
  Sender: FDA-Public Use
  Company Number: US-AUROBINDO-AUR-APL-2020-004012

PATIENT
  Age: 38 Year
  Sex: Female

DRUGS (3)
  1. ESMOLOL [Suspect]
     Active Substance: ESMOLOL HYDROCHLORIDE
     Indication: BASEDOW^S DISEASE
     Dosage: UNK
     Route: 065
  2. PROPRANOLOL [Suspect]
     Active Substance: PROPRANOLOL HYDROCHLORIDE
     Indication: BASEDOW^S DISEASE
     Dosage: UNK
     Route: 065
  3. PROPYLTHIOURACIL. [Suspect]
     Active Substance: PROPYLTHIOURACIL
     Indication: BASEDOW^S DISEASE
     Dosage: UNK
     Route: 065

REACTIONS (9)
  - Hyperthyroidism [Recovered/Resolved]
  - Mitral valve incompetence [Recovered/Resolved]
  - Paradoxical drug reaction [Recovered/Resolved]
  - Right atrial dilatation [Recovered/Resolved]
  - Cardiac failure [Recovered/Resolved]
  - Blood pressure systolic decreased [Recovered/Resolved]
  - Hypoxia [Recovered/Resolved]
  - Heart rate decreased [Recovered/Resolved]
  - Tricuspid valve incompetence [Recovered/Resolved]
